FAERS Safety Report 4315033-3 (Version None)
Quarter: 2004Q1

REPORT INFORMATION
  Report Type: 
  Country: None (occurrence: None)
  Receive Date: 20040309
  Receipt Date: 20040225
  Transmission Date: 20041129
  Serious: Yes (Other)
  Sender: FDA-Public Use
  Company Number: CA_040206681

PATIENT
  Sex: Female

DRUGS (1)
  1. EVISTA [Suspect]
     Dates: start: 19990101

REACTIONS (1)
  - ENDOMETRIAL CANCER [None]
